FAERS Safety Report 20735341 (Version 1)
Quarter: 2022Q2

REPORT INFORMATION
  Report Type: Spontaneous
  Country: US (occurrence: None)
  Receive Date: 20220420
  Receipt Date: 20220420
  Transmission Date: 20220721
  Serious: No
  Sender: FDA-Public Use
  Company Number: None

PATIENT
  Age: 37 Year
  Sex: Female
  Weight: 50.35 kg

DRUGS (1)
  1. SUCRAID [Suspect]
     Active Substance: SACROSIDASE
     Indication: Sucrase-isomaltase deficiency
     Dosage: OTHER STRENGTH : 8500 UNIT/ML;?OTHER QUANTITY : 2 ML UP TO 6 TIMES;?FREQUENCY : DAILY;?
     Route: 048
     Dates: start: 20190131

REACTIONS (4)
  - Nervousness [None]
  - Insomnia [None]
  - Restlessness [None]
  - Movement disorder [None]

NARRATIVE: CASE EVENT DATE: 20220131
